FAERS Safety Report 21159958 (Version 1)
Quarter: 2022Q3

REPORT INFORMATION
  Report Type: Spontaneous
  Country: DE (occurrence: DE)
  Receive Date: 20220802
  Receipt Date: 20220802
  Transmission Date: 20221026
  Serious: Yes (Other)
  Sender: FDA-Public Use
  Company Number: DE-NOVARTISPH-NVSC2022DE173331

PATIENT
  Age: 61 Year
  Sex: Male
  Weight: 103 kg

DRUGS (8)
  1. DEXAMETHASONE [Suspect]
     Active Substance: DEXAMETHASONE
     Indication: Plasma cell myeloma
     Dosage: 40 MG (FREQUENCY TEXT: NOT PROVIDED 40 MILLIGRAM)
     Route: 065
     Dates: start: 20210424
  2. DEXAMETHASONE [Suspect]
     Active Substance: DEXAMETHASONE
     Dosage: 40 MG (FREQUENCY TEXT: NOT PROVIDED 40 MILLIGRAM)
     Route: 065
     Dates: start: 20210427
  3. DARATUMUMAB [Suspect]
     Active Substance: DARATUMUMAB
     Indication: Plasma cell myeloma
     Dosage: 1648 MG (FREQUENCY TEXT: NOT PROVIDED 1648 MILLIGRAM)
     Route: 065
     Dates: start: 20210424, end: 20210802
  4. DARATUMUMAB [Suspect]
     Active Substance: DARATUMUMAB
     Dosage: 1648 MG (FREQUENCY TEXT: NOT PROVIDED 1648 MILLIGRAM)
     Route: 065
     Dates: start: 20210427
  5. THALIDOMIDE [Suspect]
     Active Substance: THALIDOMIDE
     Indication: Plasma cell myeloma
     Dosage: 100 MG (FREQUENCY TEXT: NOT PROVIDED 100 MILLIGRAM)
     Route: 065
     Dates: start: 20210424, end: 20210815
  6. THALIDOMIDE [Suspect]
     Active Substance: THALIDOMIDE
     Dosage: 100 MG (FREQUENCY TEXT: NOT PROVIDED 100 MILLIGRAM)
     Route: 065
     Dates: start: 20210427
  7. VELCADE [Suspect]
     Active Substance: BORTEZOMIB
     Indication: Plasma cell myeloma
     Dosage: 2.6 MG 9FREQUENCY TEXT: NOT PROVIDED 2.6 MILLIGRAM)
     Route: 065
     Dates: start: 20210424, end: 20210701
  8. VELCADE [Suspect]
     Active Substance: BORTEZOMIB
     Dosage: 2.6 MG FREQUENCY TEXT: NOT PROVIDED 2.6 MILLIGRAM)
     Route: 065
     Dates: start: 20210427

REACTIONS (2)
  - Neuropathy peripheral [Not Recovered/Not Resolved]
  - Hypotension [Recovering/Resolving]

NARRATIVE: CASE EVENT DATE: 20210615
